FAERS Safety Report 8779367 (Version 1)
Quarter: 2012Q4

REPORT INFORMATION
  Report Type: 
  Country: US (occurrence: US)
  Receive Date: 20120911
  Receipt Date: 20120911
  Transmission Date: 20130627
  Serious: Yes (Other)
  Sender: FDA-Public Use
  Company Number: US-ELI_LILLY_AND_COMPANY-US201208009637

PATIENT
  Sex: Female

DRUGS (3)
  1. HUMALOG LISPRO [Suspect]
     Indication: TYPE 1 DIABETES MELLITUS
     Dosage: 10 u, tid
     Dates: start: 2010, end: 20120825
  2. LANTUS [Concomitant]
     Indication: TYPE 1 DIABETES MELLITUS
     Dosage: 13 u, each evening
     Dates: end: 20120825
  3. LANTUS [Concomitant]
     Dosage: 10 u, tid
     Dates: start: 20120826

REACTIONS (1)
  - Dialysis [Not Recovered/Not Resolved]
